FAERS Safety Report 25859596 (Version 1)
Quarter: 2025Q3

REPORT INFORMATION
  Report Type: Spontaneous
  Country: US (occurrence: None)
  Receive Date: 20250926
  Receipt Date: 20250926
  Transmission Date: 20251021
  Serious: Yes (Other)
  Sender: FDA-CTU
  Company Number: None

PATIENT
  Age: 58 Year
  Sex: Male
  Weight: 90.72 kg

DRUGS (5)
  1. CORTICOTROPIN [Suspect]
     Active Substance: CORTICOTROPIN
     Indication: Multiple sclerosis
     Route: 058
     Dates: start: 20250313
  2. OCREVUS [Concomitant]
     Active Substance: OCRELIZUMAB
  3. VITAMIN D [Concomitant]
     Active Substance: VITAMIN D NOS
  4. AMLODIPINE BESYLATE [Concomitant]
     Active Substance: AMLODIPINE BESYLATE
  5. LOSARTAN POTASSIUM [Concomitant]
     Active Substance: LOSARTAN POTASSIUM

REACTIONS (6)
  - Temperature intolerance [None]
  - Fatigue [None]
  - Pain [None]
  - Headache [None]
  - Dyspnoea [None]
  - Sleep disorder [None]

NARRATIVE: CASE EVENT DATE: 20250926
